FAERS Safety Report 8145462-1 (Version None)
Quarter: 2012Q1

REPORT INFORMATION
  Report Type: 
  Country: None (occurrence: None)
  Receive Date: 20120217
  Receipt Date: 20120213
  Transmission Date: 20120608
  Serious: Yes (Death, Hospitalization)
  Sender: FDA-Public Use
  Company Number: US-CELGENEUS-163-50794-12021344

PATIENT
  Sex: Male

DRUGS (2)
  1. AMICAR [Suspect]
     Route: 065
  2. VIDAZA [Suspect]
     Route: 065
     Dates: end: 20120113

REACTIONS (6)
  - FATIGUE [None]
  - DEATH [None]
  - PYREXIA [None]
  - NAUSEA [None]
  - CATHETER SITE HAEMORRHAGE [None]
  - ABDOMINAL PAIN [None]
